FAERS Safety Report 7300108-7 (Version None)
Quarter: 2011Q1

REPORT INFORMATION
  Report Type: 
  Country: None (occurrence: None)
  Receive Date: 20110217
  Receipt Date: 20110208
  Transmission Date: 20110831
  Serious: Yes (Hospitalization, Other)
  Sender: FDA-Public Use
  Company Number: BE-ABBOTT-11P-013-0697804-01

PATIENT
  Sex: Female

DRUGS (12)
  1. HUMIRA [Suspect]
     Indication: CROHN'S DISEASE
     Dosage: 160 MG (BASELINE)/80 MG (WEEK 2)
     Route: 058
     Dates: start: 20081121, end: 20081121
  2. PIROXICAM [Concomitant]
     Indication: PROCTALGIA
  3. PREDNISOLONE [Concomitant]
     Indication: ARTHRALGIA
     Dates: start: 20100930, end: 20110101
  4. PREDNISOLONE [Concomitant]
     Indication: CROHN'S DISEASE
     Dates: start: 20110101, end: 20110117
  5. HUMIRA [Suspect]
  6. PIROXICAM [Concomitant]
     Indication: PROCEDURAL PAIN
     Dates: start: 20091024
  7. ELTHYRONE [Concomitant]
     Indication: HYPOTHYROIDISM
     Dates: start: 20061215
  8. LEDERTREXATE [Concomitant]
     Dosage: WEEKLY
     Dates: start: 20110101
  9. HUMIRA [Suspect]
     Dates: end: 20101115
  10. EFFEXOR [Concomitant]
     Indication: DEPRESSION
     Dates: start: 20051201
  11. ZALDIAR [Concomitant]
     Indication: ARTHRALGIA
     Dates: start: 20100816
  12. LEDERTREXATE [Concomitant]
     Indication: CROHN'S DISEASE
     Dates: start: 20101115, end: 20110101

REACTIONS (2)
  - SUBILEUS [None]
  - ANAL ABSCESS [None]
